FAERS Safety Report 21381856 (Version 2)
Quarter: 2022Q4

REPORT INFORMATION
  Report Type: Spontaneous
  Country: US (occurrence: US)
  Receive Date: 20220927
  Receipt Date: 20221010
  Transmission Date: 20230113
  Serious: Yes (Other)
  Sender: FDA-Public Use
  Company Number: US-PFIZER INC-PV202200070721

PATIENT
  Age: 53 Year
  Sex: Male

DRUGS (1)
  1. XYNTHA [Suspect]
     Active Substance: ANTIHEMOPHILIC FACTOR, HUMAN RECOMBINANT RESIDUES 743-1636 DELETED
     Dosage: UNK (XYNTHA (+/- 5%) 5815 UNITS (50U/KG X 116.3 KG ) INTRAVENOUS X 5 DOSES FOR PRE PROCEDURE FACTOR)
     Route: 042

REACTIONS (2)
  - Haemorrhage [Unknown]
  - Pain [Unknown]
